FAERS Safety Report 8968202 (Version 1)
Quarter: 2012Q4

REPORT INFORMATION
  Report Type: Spontaneous
  Country: US (occurrence: None)
  Receive Date: 20121213
  Receipt Date: 20121213
  Transmission Date: 20130627
  Serious: No
  Sender: FDA-Public Use
  Company Number: None

PATIENT
  Age: 71 Year
  Sex: Male
  Weight: 88.6 kg

DRUGS (1)
  1. TICAGRELOR [Suspect]
     Indication: CORONARY STENT PLACEMENT
     Route: 048
     Dates: start: 20120821, end: 20120823

REACTIONS (5)
  - Rash pruritic [None]
  - Rash maculo-papular [None]
  - Rash generalised [None]
  - Drug eruption [None]
  - Urticaria [None]
